FAERS Safety Report 4482474-3 (Version None)
Quarter: 2004Q4

REPORT INFORMATION
  Report Type: 
  Country: None (occurrence: None)
  Receive Date: 20041022
  Receipt Date: 20041013
  Transmission Date: 20050328
  Serious: Yes (Death)
  Sender: FDA-Public Use
  Company Number: JP-GLAXOSMITHKLINE-B0348457A

PATIENT
  Age: 48 Year
  Sex: Male

DRUGS (7)
  1. PAXIL [Suspect]
     Indication: DEPRESSION
     Route: 048
     Dates: start: 20020917, end: 20040725
  2. LENDORMIN [Concomitant]
     Route: 048
  3. ISALON [Concomitant]
     Route: 048
  4. MYSLEE [Concomitant]
     Route: 048
     Dates: start: 20040101
  5. DORAL [Concomitant]
     Route: 048
     Dates: start: 20040101
  6. MEKITACK [Concomitant]
     Route: 048
  7. DEPAS [Concomitant]
     Route: 048
     Dates: start: 20040301

REACTIONS (1)
  - COMPLETED SUICIDE [None]
